FAERS Safety Report 7011211-3 (Version None)
Quarter: 2010Q3

REPORT INFORMATION
  Report Type: 
  Country: None (occurrence: None)
  Receive Date: 20100923
  Receipt Date: 20081215
  Transmission Date: 20110219
  Serious: No
  Sender: FDA-Public Use
  Company Number: US-WYE-H07281308

PATIENT
  Age: 30 Year
  Sex: Female
  Weight: 54.48 kg

DRUGS (1)
  1. ADVIL COLD AND SINUS [Suspect]
     Indication: NASAL CONGESTION
     Route: 048
     Dates: start: 20081212, end: 20081213

REACTIONS (2)
  - CHEST DISCOMFORT [None]
  - RESTLESSNESS [None]
